FAERS Safety Report 20811766 (Version 1)
Quarter: 2022Q2

REPORT INFORMATION
  Report Type: Spontaneous
  Country: US (occurrence: US)
  Receive Date: 20220511
  Receipt Date: 20220511
  Transmission Date: 20220721
  Serious: No
  Sender: FDA-Public Use
  Company Number: US-BRISTOL-MYERS SQUIBB COMPANY-2022-030430

PATIENT
  Age: 73 Year
  Sex: Female

DRUGS (4)
  1. POMALYST [Suspect]
     Active Substance: POMALIDOMIDE
     Indication: Plasma cell myeloma
     Route: 048
     Dates: start: 20220102
  2. POMALYST [Suspect]
     Active Substance: POMALIDOMIDE
     Dosage: AKE 1 CAPSULE BY MOUTH DAILY DAYS 1-21 OF CYCLE
     Route: 048
     Dates: start: 202201
  3. POMALYST [Suspect]
     Active Substance: POMALIDOMIDE
     Route: 048
     Dates: start: 202203
  4. INVESTIGATIONAL PRODUCT [Suspect]
     Active Substance: INVESTIGATIONAL PRODUCT
     Indication: COVID-19 immunisation

REACTIONS (5)
  - Burning sensation [Unknown]
  - Skin disorder [Unknown]
  - Pain of skin [Unknown]
  - Paraesthesia [Unknown]
  - Pain in extremity [Unknown]

NARRATIVE: CASE EVENT DATE: 20220301
